FAERS Safety Report 11856790 (Version 1)
Quarter: 2015Q4

REPORT INFORMATION
  Report Type: Spontaneous
  Country: US (occurrence: US)
  Receive Date: 20151221
  Receipt Date: 20151221
  Transmission Date: 20160305
  Serious: No
  Sender: FDA-Public Use
  Company Number: US-009507513-1512USA005103

PATIENT
  Sex: Female

DRUGS (1)
  1. NASONEX [Suspect]
     Active Substance: MOMETASONE FUROATE
     Indication: HYPERSENSITIVITY
     Dosage: 50 MICROGRAM, UNK
     Route: 045

REACTIONS (4)
  - Drug dose omission [Unknown]
  - Upper-airway cough syndrome [Recovered/Resolved]
  - Sinus disorder [Recovered/Resolved]
  - Product quality issue [Unknown]
